FAERS Safety Report 23757538 (Version 1)
Quarter: 2024Q2

REPORT INFORMATION
  Report Type: Spontaneous
  Country: CN (occurrence: CN)
  Receive Date: 20240418
  Receipt Date: 20240418
  Transmission Date: 20240715
  Serious: Yes (Other)
  Sender: FDA-Public Use
  Company Number: CN-PFIZER INC-PV202400050048

PATIENT
  Age: 26 Year
  Sex: Male
  Weight: 85 kg

DRUGS (5)
  1. CIBINQO [Suspect]
     Active Substance: ABROCITINIB
     Indication: Dermatitis atopic
     Dosage: 1 DF, 1X/DAY
     Route: 048
     Dates: start: 20230718, end: 20240409
  2. EBASTINE [Concomitant]
     Active Substance: EBASTINE
     Indication: Dermatitis atopic
     Dosage: 1 DF, 1X/DAY
     Route: 048
     Dates: start: 20240109, end: 20240312
  3. CYPROHEPTADINE HYDROCHLORIDE [Concomitant]
     Active Substance: CYPROHEPTADINE HYDROCHLORIDE
     Indication: Dermatitis atopic
     Dosage: 1 DF, 1X/DAY
     Route: 048
     Dates: start: 20240109, end: 20240312
  4. OLOPATADINE [Concomitant]
     Active Substance: OLOPATADINE
     Dosage: UNK
     Dates: end: 202312
  5. TRANILAST [Concomitant]
     Active Substance: TRANILAST
     Dosage: UNK
     Dates: end: 202312

REACTIONS (1)
  - Drug-induced liver injury [Not Recovered/Not Resolved]

NARRATIVE: CASE EVENT DATE: 20240312
